FAERS Safety Report 17487850 (Version 3)
Quarter: 2020Q3

REPORT INFORMATION
  Report Type: Spontaneous
  Country: US (occurrence: US)
  Receive Date: 20200303
  Receipt Date: 20200824
  Transmission Date: 20201102
  Serious: Yes (Hospitalization, Other)
  Sender: FDA-Public Use
  Company Number: US-PFIZER INC-2020093190

PATIENT
  Age: 66 Year
  Sex: Female

DRUGS (1)
  1. XELJANZ [Suspect]
     Active Substance: TOFACITINIB CITRATE
     Indication: COLITIS ULCERATIVE
     Dosage: 5 MG, 2X/DAY (TWICE DAILY)
     Route: 048
     Dates: start: 20190612

REACTIONS (12)
  - Skin lesion [Unknown]
  - Erythema [Unknown]
  - Abdominal adhesions [Recovered/Resolved]
  - Pain [Unknown]
  - Rectal haemorrhage [Unknown]
  - Abdominal hernia [Recovered/Resolved]
  - Haemorrhoids [Unknown]
  - Condition aggravated [Recovered/Resolved]
  - Small intestinal obstruction [Recovered/Resolved]
  - Sleep disorder [Unknown]
  - Dry skin [Unknown]
  - Functional gastrointestinal disorder [Unknown]

NARRATIVE: CASE EVENT DATE: 201911
